FAERS Safety Report 11908784 (Version 2)
Quarter: 2016Q2

REPORT INFORMATION
  Report Type: Spontaneous
  Country: US (occurrence: US)
  Receive Date: 20160111
  Receipt Date: 20160414
  Transmission Date: 20160815
  Serious: No
  Sender: FDA-Public Use
  Company Number: US-GALDERMA-US15008808

PATIENT
  Age: 45 Year
  Sex: Female

DRUGS (2)
  1. CLOBETASOL PROPIONATE (CLOBETASOL PROPIONATE) [Suspect]
     Active Substance: CLOBETASOL PROPIONATE
     Indication: PRURITUS
     Route: 061
     Dates: start: 201511, end: 20151123
  2. SOOLANTRA [Suspect]
     Active Substance: IVERMECTIN
     Indication: ROSACEA
     Dosage: 1%
     Route: 061
     Dates: start: 20151120, end: 20151123

REACTIONS (7)
  - Erythema [Recovered/Resolved]
  - Skin irritation [Recovered/Resolved]
  - Pruritus [Recovered/Resolved]
  - Rosacea [Recovering/Resolving]
  - Dermatitis allergic [Recovered/Resolved]
  - Skin burning sensation [Recovered/Resolved]
  - Product use issue [Recovered/Resolved]

NARRATIVE: CASE EVENT DATE: 20151120
